FAERS Safety Report 10489525 (Version 1)
Quarter: 2014Q3

REPORT INFORMATION
  Report Type: Spontaneous
  Country: US (occurrence: None)
  Receive Date: 20140815
  Receipt Date: 20140815
  Transmission Date: 20150326
  Serious: Yes (Other)
  Sender: FDA-Public Use
  Company Number: ADR-2013-02187

PATIENT
  Age: 45 Year
  Sex: Female

DRUGS (2)
  1. DILAUDID [Suspect]
     Active Substance: HYDROMORPHONE HYDROCHLORIDE
     Indication: PAIN
     Dosage: SUSPENDED 10/29/2013
  2. COMPOUNDED BACLOFEN [Suspect]
     Active Substance: BACLOFEN
     Indication: PAIN
     Dosage: SUSPENDED 10/29/2013

REACTIONS (3)
  - Arthralgia [None]
  - Fall [None]
  - Pain in extremity [None]

NARRATIVE: CASE EVENT DATE: 20131009
